FAERS Safety Report 5731996-3 (Version None)
Quarter: 2008Q2

REPORT INFORMATION
  Report Type: 
  Country: None (occurrence: None)
  Receive Date: 20080508
  Receipt Date: 20080505
  Transmission Date: 20081010
  Serious: Yes (Other)
  Sender: FDA-Public Use
  Company Number: HR-JNJFOC-20080501058

PATIENT
  Age: 52 Year
  Sex: Female

DRUGS (4)
  1. RISPOLEPT CONSTA [Suspect]
     Indication: DRUG USE FOR UNKNOWN INDICATION
  2. AKINETON [Concomitant]
  3. MISAR [Concomitant]
  4. AMYZOL [Concomitant]

REACTIONS (1)
  - EYE SWELLING [None]
